FAERS Safety Report 8514221-X (Version None)
Quarter: 2012Q3

REPORT INFORMATION
  Report Type: 
  Country: None (occurrence: None)
  Receive Date: 20120717
  Receipt Date: 20120712
  Transmission Date: 20120928
  Serious: Yes (Hospitalization)
  Sender: FDA-Public Use
  Company Number: US-BAYER-2011-005771

PATIENT
  Age: 41 Year
  Sex: Female
  Weight: 108.84 kg

DRUGS (4)
  1. YAZ [Suspect]
     Indication: CONTRACEPTION
  2. YAZ [Suspect]
     Indication: PREMENSTRUAL SYNDROME
     Dosage: UNK
     Route: 048
     Dates: start: 20060927, end: 20061218
  3. CLONAZEPAM [Concomitant]
     Dosage: 0.5 MG, UNK
  4. YASMIN [Suspect]
     Dosage: UNK

REACTIONS (6)
  - PAIN [None]
  - FEAR [None]
  - INJURY [None]
  - EMOTIONAL DISTRESS [None]
  - DEEP VEIN THROMBOSIS [None]
  - ANXIETY [None]
